FAERS Safety Report 6686025-4 (Version None)
Quarter: 2010Q2

REPORT INFORMATION
  Report Type: 
  Country: None (occurrence: None)
  Receive Date: 20100415
  Receipt Date: 20100415
  Transmission Date: 20101027
  Serious: Yes (Other)
  Sender: FDA-Public Use
  Company Number: None

PATIENT
  Sex: Female
  Weight: 70 kg

DRUGS (1)
  1. KETOROLAC TROMETHAMINE [Suspect]
     Dosage: IVP
     Route: 040

REACTIONS (3)
  - DRUG HYPERSENSITIVITY [None]
  - FEELING ABNORMAL [None]
  - RESPIRATORY DISTRESS [None]
